FAERS Safety Report 11003829 (Version 1)
Quarter: 2015Q2

REPORT INFORMATION
  Report Type: Spontaneous
  Country: US (occurrence: None)
  Receive Date: 20150408
  Receipt Date: 20150408
  Transmission Date: 20150821
  Serious: Yes (Other)
  Sender: FDA-Public Use
  Company Number: None

PATIENT
  Age: 54 Year
  Sex: Male
  Weight: 113.4 kg

DRUGS (5)
  1. LOVAZA [Concomitant]
     Active Substance: OMEGA-3-ACID ETHYL ESTERS
  2. LISINOPRIL. [Concomitant]
     Active Substance: LISINOPRIL
  3. CRESTOR [Suspect]
     Active Substance: ROSUVASTATIN CALCIUM
     Indication: HIGH DENSITY LIPOPROTEIN INCREASED
     Dosage: TAKEN BY MOUTH
     Route: 048
     Dates: start: 20140910, end: 20150406
  4. METOPROLOL [Concomitant]
     Active Substance: METOPROLOL
  5. WELCHOL [Concomitant]
     Active Substance: COLESEVELAM HYDROCHLORIDE

REACTIONS (13)
  - Amnesia [None]
  - Back pain [None]
  - Musculoskeletal stiffness [None]
  - Quality of life decreased [None]
  - Arthralgia [None]
  - Dysstasia [None]
  - Feeling abnormal [None]
  - Muscle spasms [None]
  - General physical health deterioration [None]
  - Neck pain [None]
  - Pelvic pain [None]
  - Hepatic pain [None]
  - Immobile [None]

NARRATIVE: CASE EVENT DATE: 20150407
